FAERS Safety Report 11810392 (Version 1)
Quarter: 2015Q4

REPORT INFORMATION
  Report Type: Spontaneous
  Country: None (occurrence: None)
  Receive Date: 20151207
  Receipt Date: 20151207
  Transmission Date: 20160305
  Serious: No
  Sender: FDA-Public Use
  Company Number: None

PATIENT
  Age: 21 Year
  Sex: Female
  Weight: 70.31 kg

DRUGS (1)
  1. SERTRALINE HCL [Suspect]
     Active Substance: SERTRALINE HYDROCHLORIDE
     Indication: DEPRESSION
     Dosage: 2 PILLS
     Route: 048
     Dates: start: 20130816, end: 20151203

REACTIONS (15)
  - Diarrhoea [None]
  - Vision blurred [None]
  - Drug withdrawal syndrome [None]
  - Fatigue [None]
  - Hypopnoea [None]
  - Decreased appetite [None]
  - Malaise [None]
  - Vomiting [None]
  - Nausea [None]
  - Dizziness [None]
  - Crying [None]
  - Orthostatic hypotension [None]
  - Dehydration [None]
  - Confusional state [None]
  - Feeling abnormal [None]

NARRATIVE: CASE EVENT DATE: 20151204
